FAERS Safety Report 5893607-6 (Version None)
Quarter: 2008Q3

REPORT INFORMATION
  Report Type: 
  Country: None (occurrence: None)
  Receive Date: 20080923
  Receipt Date: 20070913
  Transmission Date: 20090109
  Serious: No
  Sender: FDA-Public Use
  Company Number: US-ASTRAZENECA-2007UW21766

PATIENT
  Sex: Male

DRUGS (2)
  1. SEROQUEL [Suspect]
     Indication: BIPOLAR DISORDER
     Dosage: FOR ABOUT 2 YEARS.
     Route: 048
     Dates: start: 20050901
  2. DIAZEPAM [Concomitant]

REACTIONS (3)
  - FLIGHT OF IDEAS [None]
  - INSOMNIA [None]
  - SOMNOLENCE [None]
